FAERS Safety Report 20124552 (Version 1)
Quarter: 2021Q4

REPORT INFORMATION
  Report Type: Spontaneous
  Country: US (occurrence: US)
  Receive Date: 20211129
  Receipt Date: 20211129
  Transmission Date: 20220303
  Serious: No
  Sender: FDA-Public Use
  Company Number: US-TEVA-2021-US-1980956

PATIENT
  Age: 40 Year
  Sex: Male

DRUGS (1)
  1. CLONAZEPAM [Suspect]
     Active Substance: CLONAZEPAM
     Dosage: 3 MILLIGRAM DAILY;
     Route: 065
     Dates: start: 2019

REACTIONS (1)
  - Drug screen negative [Not Recovered/Not Resolved]

NARRATIVE: CASE EVENT DATE: 20210101
